FAERS Safety Report 6078460-2 (Version None)
Quarter: 2009Q1

REPORT INFORMATION
  Report Type: 
  Country: None (occurrence: None)
  Receive Date: 20090212
  Receipt Date: 20090212
  Transmission Date: 20090719
  Serious: Yes (Life-Threatening, Hospitalization)
  Sender: FDA-Public Use
  Company Number: None

PATIENT
  Age: 77 Year
  Sex: Male
  Weight: 72 kg

DRUGS (7)
  1. AMIODARONE HYDROCHLORIDE [Suspect]
     Indication: ATRIAL FIBRILLATION
     Dosage: 400 MG QAM PO GREATER THAN 10 MONTHS
     Route: 048
  2. VISIPAQUE [Concomitant]
  3. PLAVIX [Concomitant]
  4. PEPCID [Concomitant]
  5. LIPITOR [Concomitant]
  6. CARVEDILOL [Concomitant]
  7. VASOTEC [Concomitant]

REACTIONS (6)
  - ACUTE MYOCARDIAL INFARCTION [None]
  - ACUTE RESPIRATORY DISTRESS SYNDROME [None]
  - CARDIAC FAILURE CONGESTIVE [None]
  - PNEUMONITIS [None]
  - PULMONARY ALVEOLAR HAEMORRHAGE [None]
  - PULMONARY FIBROSIS [None]
